FAERS Safety Report 9202723 (Version 3)
Quarter: 2013Q2

REPORT INFORMATION
  Report Type: Spontaneous
  Country: JP (occurrence: JP)
  Receive Date: 20130401
  Receipt Date: 20130509
  Transmission Date: 20140414
  Serious: Yes (Other)
  Sender: FDA-Public Use
  Company Number: JP-PFIZER INC-2013102358

PATIENT
  Age: 30 Year
  Sex: Male

DRUGS (1)
  1. LYRICA [Suspect]
     Indication: HYPOAESTHESIA ORAL
     Dosage: 75 MG, 1X/DAY
     Route: 048
     Dates: start: 20130218, end: 20130224

REACTIONS (3)
  - Mental impairment [Recovering/Resolving]
  - Lip dry [Recovering/Resolving]
  - Malaise [Recovering/Resolving]
